FAERS Safety Report 21511104 (Version 2)
Quarter: 2023Q1

REPORT INFORMATION
  Report Type: Report from Study
  Country: US (occurrence: US)
  Receive Date: 20221027
  Receipt Date: 20230207
  Transmission Date: 20230417
  Serious: Yes (Hospitalization, Other)
  Sender: FDA-Public Use
  Company Number: US-ABBVIE-4173064

PATIENT
  Sex: Female

DRUGS (2)
  1. HUMIRA [Suspect]
     Active Substance: ADALIMUMAB
     Indication: Uveitis
     Route: 058
     Dates: start: 202204
  2. HUMIRA [Suspect]
     Active Substance: ADALIMUMAB
     Indication: Uveitis
     Route: 058
     Dates: start: 20220628

REACTIONS (10)
  - Blindness [Not Recovered/Not Resolved]
  - Blindness [Unknown]
  - Wrong technique in product usage process [Not Recovered/Not Resolved]
  - Injection site pain [Unknown]
  - Injury associated with device [Unknown]
  - Confusional state [Unknown]
  - Injury corneal [Unknown]
  - Uveitis [Not Recovered/Not Resolved]
  - Blindness unilateral [Unknown]
  - Blepharoplasty [Unknown]

NARRATIVE: CASE EVENT DATE: 20220101
